FAERS Safety Report 6687540-X (Version None)
Quarter: 2010Q2

REPORT INFORMATION
  Report Type: 
  Country: None (occurrence: None)
  Receive Date: 20100419
  Receipt Date: 20090903
  Transmission Date: 20101027
  Serious: No
  Sender: FDA-Public Use
  Company Number: US-ABBOTT-09P-163-0592197-00

PATIENT
  Sex: Female
  Weight: 27.24 kg

DRUGS (1)
  1. LUPRON DEPOT-PED [Suspect]
     Indication: PRECOCIOUS PUBERTY
     Dates: start: 20090401, end: 20090814

REACTIONS (3)
  - ABASIA [None]
  - INJECTION SITE NODULE [None]
  - MOBILITY DECREASED [None]
